FAERS Safety Report 10534444 (Version 1)
Quarter: 2014Q4

REPORT INFORMATION
  Report Type: Spontaneous
  Country: US (occurrence: None)
  Receive Date: 20141021
  Receipt Date: 20141021
  Transmission Date: 20150529
  Serious: No
  Sender: FDA-Public Use
  Company Number: None

PATIENT
  Age: 33 Year
  Sex: Female
  Weight: 61.24 kg

DRUGS (1)
  1. VIMPAT [Suspect]
     Active Substance: LACOSAMIDE
     Indication: SEIZURE
     Dates: start: 20141020

REACTIONS (4)
  - Overdose [None]
  - Status epilepticus [None]
  - Acidosis [None]
  - Tachycardia [None]

NARRATIVE: CASE EVENT DATE: 20141020
